FAERS Safety Report 6964893-6 (Version None)
Quarter: 2010Q3

REPORT INFORMATION
  Report Type: 
  Country: None (occurrence: None)
  Receive Date: 20100903
  Receipt Date: 20100824
  Transmission Date: 20110219
  Serious: Yes (Other)
  Sender: FDA-Public Use
  Company Number: US-ELI_LILLY_AND_COMPANY-US201007000439

PATIENT
  Sex: Female

DRUGS (5)
  1. HUMULIN 70/30 [Suspect]
     Indication: DIABETES MELLITUS
     Dosage: 70 U, 2/D
  2. NPH INSULIN [Concomitant]
  3. LISINOPRIL [Concomitant]
  4. ACETAZOLAMIDE [Concomitant]
  5. REGULAR INSULIN [Concomitant]

REACTIONS (2)
  - BLINDNESS [None]
  - DIABETIC RETINOPATHY [None]
